FAERS Safety Report 6939323-0 (Version None)
Quarter: 2010Q3

REPORT INFORMATION
  Report Type: 
  Country: None (occurrence: None)
  Receive Date: 20100824
  Receipt Date: 20100812
  Transmission Date: 20110219
  Serious: Yes (Other)
  Sender: FDA-Public Use
  Company Number: DE-PFIZER INC-2010101880

PATIENT
  Sex: Male

DRUGS (1)
  1. AZULFIDINE [Suspect]
     Dosage: UNK
     Dates: start: 20010101, end: 20080101

REACTIONS (2)
  - ASTHENOSPERMIA [None]
  - INFERTILITY MALE [None]
